FAERS Safety Report 17928827 (Version 2)
Quarter: 2020Q3

REPORT INFORMATION
  Report Type: Spontaneous
  Country: HU (occurrence: HU)
  Receive Date: 20200623
  Receipt Date: 20200908
  Transmission Date: 20201103
  Serious: Yes (Death, Hospitalization)
  Sender: FDA-Public Use
  Company Number: HU-ABBVIE-20K-076-3360652-00

PATIENT
  Age: 72 Year
  Sex: Male

DRUGS (21)
  1. DUODOPA [Suspect]
     Active Substance: CARBIDOPA\LEVODOPA
     Dosage: MD :6.7 ML; DAILY CD : 5.5 ML/H; EVENING CD: 4.4 ML/H; ED: 1.5 ML
     Route: 050
     Dates: start: 202004, end: 20200410
  2. CORBILTA [Concomitant]
     Active Substance: CARBIDOPA\ENTACAPONE\LEVODOPA
     Dosage: ENTACAPONE 200 MG, CARBIDOPA 50MG, LEVODOPA 200MG?EVERY 4?5 HOURS
     Route: 048
     Dates: start: 20200410
  3. LEPONEX [Concomitant]
     Active Substance: CLOZAPINE
     Indication: CONFUSIONAL STATE
     Dosage: MORNING: 25MG; NOON: 12.5MG; EVENING: 25MG
     Route: 048
     Dates: start: 202006
  4. NEO FERRO FOLGAMMA [Concomitant]
     Indication: MINERAL SUPPLEMENTATION
     Route: 048
     Dates: start: 202006
  5. CONTROLOC [Concomitant]
     Active Substance: PANTOPRAZOLE SODIUM
     Indication: GASTROINTESTINAL DISORDER PROPHYLAXIS
     Route: 042
     Dates: start: 202006
  6. CORBILTA [Concomitant]
     Active Substance: CARBIDOPA\ENTACAPONE\LEVODOPA
     Indication: PARKINSON^S DISEASE
     Dosage: ENTACAPONE 200 MG, CARBIDOPA 50MG, LEVODOPA 200MG, EVERY 3?4 HRS
     Route: 048
     Dates: start: 20200311, end: 20200328
  7. MADOPAR [Concomitant]
     Active Substance: BENSERAZIDE HYDROCHLORIDE\LEVODOPA
     Indication: PARKINSON^S DISEASE
     Dosage: 100 MG LEVODOPA, 25 MG BENSERAZIDE, EVERY 4 HRS 1 TAB AT EVENING
     Route: 048
     Dates: start: 20200311, end: 20200328
  8. CLEXANE [Concomitant]
     Active Substance: ENOXAPARIN SODIUM
     Indication: PRODUCT USED FOR UNKNOWN INDICATION
     Dosage: 40 MG/0.4 ML
     Route: 058
     Dates: start: 202006
  9. MADOPAR [Concomitant]
     Active Substance: BENSERAZIDE HYDROCHLORIDE\LEVODOPA
     Dosage: 100 MG LEVODOPA, 25 MG BENSERAZIDE, EVERY 4 HRS DURING DAYTIME
     Route: 048
     Dates: start: 20200329, end: 20200402
  10. VOLTAREN [Concomitant]
     Active Substance: DICLOFENAC SODIUM
     Indication: PRODUCT USED FOR UNKNOWN INDICATION
     Route: 042
     Dates: start: 202006
  11. DUODOPA [Suspect]
     Active Substance: CARBIDOPA\LEVODOPA
     Indication: PARKINSON^S DISEASE
     Dosage: MD: 6.7 ML; DAILY CD : 5.5 ML/H; CD AT NIGHT: 5.0 ML; ED: 2.5 ML
     Route: 050
     Dates: start: 20170214, end: 20200310
  12. DUODOPA [Suspect]
     Active Substance: CARBIDOPA\LEVODOPA
     Dosage: MD: 6.7 ML; DAILY CD : 5 ML/H; CD AT NIGHT: 4.1 ML; ED DAYTIME: 2.5 ML; ED NIGHT: 1.5 ML
     Route: 050
     Dates: start: 20200403, end: 202004
  13. CORBILTA [Concomitant]
     Active Substance: CARBIDOPA\ENTACAPONE\LEVODOPA
     Dosage: ENTACAPONE 200 MG, CARBIDOPA 50MG, LEVODOPA 200MG, EVERY 3?4 HRS DURING DAYTIME
     Route: 048
     Dates: start: 20200329, end: 20200402
  14. RIVOTRIL [Concomitant]
     Active Substance: CLONAZEPAM
     Indication: PRODUCT USED FOR UNKNOWN INDICATION
     Dosage: 0.5 MG AS REQUIRED
     Dates: start: 202006
  15. DUODOPA [Suspect]
     Active Substance: CARBIDOPA\LEVODOPA
     Dosage: MD: 3.0 ML; DAILY CD : 0 ML/H; CD AT NIGHT: 5.0 ML/H; ED : 2.5 ML, BETWEEN 8 PM?8 AM
     Route: 050
     Dates: start: 20200328, end: 20200402
  16. DUODOPA [Suspect]
     Active Substance: CARBIDOPA\LEVODOPA
     Dosage: DOSE NOT REPORTED
     Route: 050
     Dates: start: 20200607, end: 202006
  17. DUODOPA [Suspect]
     Active Substance: CARBIDOPA\LEVODOPA
     Dosage: MORNING DOSE: 4 ML; CONTINUOUS DOSE: 3.0 ML/H; EXTRA DOSE: 1.5 ML
     Route: 050
     Dates: start: 20200616
  18. MADOPAR [Concomitant]
     Active Substance: BENSERAZIDE HYDROCHLORIDE\LEVODOPA
     Dosage: 100 MG LEVODOPA, 25 MG BENSERAZIDE?EVERY 4?5 HOURS
     Route: 048
     Dates: start: 20200410, end: 2020
  19. MADOPAR [Concomitant]
     Active Substance: BENSERAZIDE HYDROCHLORIDE\LEVODOPA
     Dosage: 200 MG LEVODOPA, 50 MG BENSERAZIDE\ 1 TABLET AT THE EVENING
     Route: 048
     Dates: start: 202006
  20. SOLUVIT [Concomitant]
     Active Substance: VITAMINS
     Indication: PRODUCT USED FOR UNKNOWN INDICATION
     Route: 042
     Dates: start: 202006
  21. TOBREX [Concomitant]
     Active Substance: TOBRAMYCIN
     Indication: PRODUCT USED FOR UNKNOWN INDICATION
     Dosage: 1 DROP 4 TIMES DAILY IN BOTH EYES\EYE DROP SOLUTION
     Dates: start: 202006

REACTIONS (11)
  - Hallucination [Not Recovered/Not Resolved]
  - Cardiac arrest [Fatal]
  - Decubitus ulcer [Recovering/Resolving]
  - Communication disorder [Unknown]
  - Confusional state [Not Recovered/Not Resolved]
  - Hallucination [Recovered/Resolved]
  - Aggression [Not Recovered/Not Resolved]
  - Intentional product misuse [Recovered/Resolved]
  - General physical health deterioration [Unknown]
  - Hallucination [Recovered/Resolved]
  - Pneumonia [Unknown]

NARRATIVE: CASE EVENT DATE: 202003
